FAERS Safety Report 4360319-X (Version None)
Quarter: 2004Q2

REPORT INFORMATION
  Report Type: 
  Country: None (occurrence: None)
  Receive Date: 20040514
  Receipt Date: 20040430
  Transmission Date: 20050107
  Serious: No
  Sender: FDA-Public Use
  Company Number: QUIN-256

PATIENT
  Age: 63 Year
  Sex: Male
  Weight: 83.9154 kg

DRUGS (4)
  1. ZONALON [Suspect]
     Indication: DERMATITIS ATOPIC
     Dosage: 1 APPLICATION TID TP
     Route: 061
     Dates: start: 20040317, end: 20040317
  2. ATENOLOL [Concomitant]
  3. TEGRETOL [Concomitant]
  4. PHENOBARBITAL TAB [Concomitant]

REACTIONS (6)
  - APPLICATION SITE DERMATITIS [None]
  - EOSINOPHIL COUNT INCREASED [None]
  - GENERALISED OEDEMA [None]
  - PRURITUS [None]
  - RASH [None]
  - SKIN BLEEDING [None]
